FAERS Safety Report 5895838-8 (Version None)
Quarter: 2008Q3

REPORT INFORMATION
  Report Type: 
  Country: None (occurrence: None)
  Receive Date: 20080924
  Receipt Date: 20080912
  Transmission Date: 20090109
  Serious: Yes (Other)
  Sender: FDA-Public Use
  Company Number: BR-JNJFOC-20080903179

PATIENT
  Age: 27 Year
  Sex: Female
  Weight: 78 kg

DRUGS (1)
  1. CHLORZOXAZONE W/ APAP [Suspect]
     Indication: MYALGIA
     Dosage: 200 MG AND 300 MG RESPECTIVELY
     Route: 048

REACTIONS (7)
  - DRY MOUTH [None]
  - DYSGEUSIA [None]
  - EYE MOVEMENT DISORDER [None]
  - FACIAL PALSY [None]
  - HYPOAESTHESIA ORAL [None]
  - LACRIMATION INCREASED [None]
  - SWOLLEN TONGUE [None]
